FAERS Safety Report 23243018 (Version 2)
Quarter: 2023Q4

REPORT INFORMATION
  Report Type: Spontaneous
  Country: IN (occurrence: IN)
  Receive Date: 20231130
  Receipt Date: 20231206
  Transmission Date: 20240110
  Serious: Yes (Life-Threatening, Hospitalization, Other)
  Sender: FDA-Public Use
  Company Number: IN-Accord-391463

PATIENT
  Age: 3 Decade
  Sex: Male

DRUGS (9)
  1. CAPECITABINE [Suspect]
     Active Substance: CAPECITABINE
     Indication: Nasal sinus cancer
     Dosage: EVERY 2 WEEKS
  2. CISPLATIN [Suspect]
     Active Substance: CISPLATIN
     Indication: Nasal sinus cancer
     Dosage: EVERY 2 WEEKS
  3. DOCETAXEL [Suspect]
     Active Substance: DOCETAXEL\DOCETAXEL ANHYDROUS
     Indication: Nasal sinus cancer
     Dosage: EVERY 2 WEEKS
  4. CAPECITABINE [Suspect]
     Active Substance: CAPECITABINE
     Indication: Recurrent cancer
     Dosage: EVERY 2 WEEKS
  5. CAPECITABINE [Suspect]
     Active Substance: CAPECITABINE
     Indication: Nasal cavity cancer
     Dosage: EVERY 2 WEEKS
  6. CISPLATIN [Suspect]
     Active Substance: CISPLATIN
     Indication: Nasal cavity cancer
     Dosage: EVERY 2 WEEKS
  7. CISPLATIN [Suspect]
     Active Substance: CISPLATIN
     Indication: Recurrent cancer
     Dosage: EVERY 2 WEEKS
  8. DOCETAXEL [Suspect]
     Active Substance: DOCETAXEL\DOCETAXEL ANHYDROUS
     Indication: Recurrent cancer
     Dosage: EVERY 2 WEEKS
  9. DOCETAXEL [Suspect]
     Active Substance: DOCETAXEL\DOCETAXEL ANHYDROUS
     Indication: Nasal cavity cancer
     Dosage: EVERY 2 WEEKS

REACTIONS (4)
  - Febrile neutropenia [Unknown]
  - Nausea [Unknown]
  - Vomiting [Unknown]
  - Ulcer [Unknown]
